FAERS Safety Report 6077604-6 (Version None)
Quarter: 2009Q1

REPORT INFORMATION
  Report Type: 
  Country: None (occurrence: None)
  Receive Date: 20090213
  Receipt Date: 20090212
  Transmission Date: 20090719
  Serious: Yes (Life-Threatening, Hospitalization)
  Sender: FDA-Public Use
  Company Number: FR-ASTRAZENECA-2009CG00364

PATIENT
  Age: 17508 Day
  Sex: Male

DRUGS (6)
  1. CRESTOR [Suspect]
     Indication: ACUTE CORONARY SYNDROME
     Route: 048
     Dates: start: 20090110, end: 20090119
  2. PLAVIX [Suspect]
     Indication: ACUTE CORONARY SYNDROME
     Route: 048
     Dates: start: 20090110, end: 20090119
  3. COVERSYL [Suspect]
     Indication: ACUTE CORONARY SYNDROME
     Route: 048
     Dates: start: 20090110, end: 20090119
  4. INIPOMP [Suspect]
     Indication: ACUTE CORONARY SYNDROME
     Route: 048
     Dates: start: 20090110, end: 20090119
  5. TENORMIN [Concomitant]
     Indication: ACUTE CORONARY SYNDROME
     Route: 048
  6. KARDEGIC [Concomitant]
     Indication: ACUTE CORONARY SYNDROME
     Route: 048

REACTIONS (2)
  - HAEMORRHAGE [None]
  - THROMBOCYTOPENIA [None]
